FAERS Safety Report 10469214 (Version 1)
Quarter: 2014Q3

REPORT INFORMATION
  Report Type: Spontaneous
  Country: US (occurrence: None)
  Receive Date: 20140829
  Receipt Date: 20140829
  Transmission Date: 20150326
  Serious: Yes (Other)
  Sender: FDA-Public Use
  Company Number: PHEH2013US026259

PATIENT
  Age: 58 Year
  Sex: Female

DRUGS (1)
  1. EXFORGE [Suspect]
     Active Substance: AMLODIPINE BESYLATE\VALSARTAN
     Route: 048

REACTIONS (2)
  - Angioedema [None]
  - Pharyngeal oedema [None]

NARRATIVE: CASE EVENT DATE: 20131219
